FAERS Safety Report 4589741-3 (Version None)
Quarter: 2005Q1

REPORT INFORMATION
  Report Type: 
  Country: None (occurrence: None)
  Receive Date: 20050217
  Receipt Date: 20050208
  Transmission Date: 20050727
  Serious: Yes (Hospitalization)
  Sender: FDA-Public Use
  Company Number: 2005US000188

PATIENT
  Age: 56 Year
  Sex: Male

DRUGS (5)
  1. AMBISOME [Suspect]
     Dosage: 210 MG, UID/QD, INTRAVENOUS
     Route: 042
     Dates: start: 20041126, end: 20041203
  2. VANCOMYCIN ^DAKOTA PHARM^ (VANCOMYCIN HYDROCHLORIDE) [Suspect]
     Dosage: 1 G, TID, INTRAVENOUS
     Route: 042
     Dates: start: 20041104, end: 20041203
  3. OFLOXACIN [Suspect]
     Dosage: 200 MG, BID, ORAL
     Route: 048
     Dates: start: 20041026, end: 20041208
  4. FLAGYL [Suspect]
     Dosage: 500.00 MG, TID, ORAL
     Route: 048
     Dates: start: 20041026, end: 20041209
  5. ROCEPHIN [Concomitant]

REACTIONS (2)
  - BRAIN ABSCESS [None]
  - NEUTROPENIA [None]
